FAERS Safety Report 6610978 (Version 14)
Quarter: 2012Q4

REPORT INFORMATION
  Report Type: 
  Country: US (occurrence: US)
  Receive Date: 20080410
  Receipt Date: 20120903
  Transmission Date: 20130627
  Serious: Yes (Other)
  Sender: FDA-Public Use
  Company Number: PHEH2008US03314

PATIENT
  Sex: Male
  Weight: 184 kg

DRUGS (55)
  1. AREDIA [Suspect]
     Indication: NEOPLASM MALIGNANT
     Dosage: 90 mg, UNK
     Dates: end: 200709
  2. ZOMETA [Suspect]
     Indication: NEOPLASM MALIGNANT
     Dosage: 4 mg, UNK
  3. AMOXICILLIN [Concomitant]
     Dosage: 500 mg, Q8H
     Route: 048
  4. CHLORHEXIDINE [Concomitant]
  5. REVLIMID [Concomitant]
  6. DEXAMETHASONE [Concomitant]
  7. DECADRON [Concomitant]
     Dosage: 40 mg, QD
  8. PERIDEX [Concomitant]
  9. PENICILLIN ^GRUNENTHAL^ [Concomitant]
     Dosage: 500 mg, Q6H
     Dates: start: 20080107
  10. HYDROCORT [Concomitant]
  11. ENOXAPARIN [Concomitant]
  12. METRONIDAZOLE [Concomitant]
  13. LOPERAMIDE [Concomitant]
  14. MEGESTROL [Concomitant]
  15. TEMAZEPAM [Concomitant]
  16. APAP [Concomitant]
  17. ACYCLOVIR [Concomitant]
     Dosage: 200 mg, UNK
  18. ALUMINIUM + MAGNESIUM HYDROXIDE/DIMETICONE [Concomitant]
  19. FAMOTIDINE [Concomitant]
  20. FLUCONAZOLE [Concomitant]
  21. CALCIUM GLUCONATE [Concomitant]
  22. FUROSEMIDE [Concomitant]
  23. POTASSIUM CHLORIDE [Concomitant]
  24. DROPERIDOL [Concomitant]
  25. FILGRASTIM [Concomitant]
  26. GELCLAIR                                /UNK/ [Concomitant]
  27. DOLASETRON [Concomitant]
  28. LORAZEPAM [Concomitant]
  29. DOCUSATE SODIUM [Concomitant]
  30. WARFARIN [Concomitant]
  31. AMANTADINE [Concomitant]
  32. CEFUROXIME [Concomitant]
  33. LISINOPRIL [Concomitant]
     Dosage: 10 mg, daily
  34. RELAFEN [Concomitant]
     Dosage: 750 mg, UNK
  35. VELCADE [Concomitant]
  36. ELAVIL [Concomitant]
  37. IMMUNOGLOBULINS [Concomitant]
     Route: 042
  38. DIFLUCAN [Concomitant]
  39. ORAMORPH [Concomitant]
  40. CYTOXAN [Concomitant]
  41. ALLOPURINOL [Concomitant]
  42. RADIATION [Concomitant]
     Dates: start: 2001
  43. MELPHALAN [Concomitant]
  44. THALIDOMIDE [Concomitant]
  45. LEVOFLOXACIN [Concomitant]
  46. VANCOMYCIN [Concomitant]
  47. SKELAXIN [Concomitant]
     Dosage: 800 mg, QHS
  48. ANUSOL-HC                               /USA/ [Concomitant]
  49. PANTOPRAZOLE [Concomitant]
  50. CALCIUM CARBONATE [Concomitant]
  51. NEUPOGEN [Concomitant]
  52. MORPHINE SULFATE [Concomitant]
  53. PROCHLORPERAZINE [Concomitant]
  54. TOBRAMYCIN [Concomitant]
  55. ZOLPIDEM [Concomitant]

REACTIONS (89)
  - Pulmonary embolism [Unknown]
  - Renal disorder [Unknown]
  - Deep vein thrombosis [Unknown]
  - Barrett^s oesophagus [Unknown]
  - Altered state of consciousness [Unknown]
  - Mass [Unknown]
  - Hepatic lesion [Unknown]
  - Pneumonia [Unknown]
  - Actinic keratosis [Unknown]
  - Interstitial lung disease [Unknown]
  - Pulmonary fibrosis [Unknown]
  - Haematochezia [Unknown]
  - Haemorrhoids [Unknown]
  - Gastrooesophageal reflux disease [Unknown]
  - Cardiomegaly [Unknown]
  - Bone lesion [Unknown]
  - Prothrombin time prolonged [Unknown]
  - Prostate cancer [Unknown]
  - Depression [Unknown]
  - Compression fracture [Unknown]
  - Lung neoplasm malignant [Recovered/Resolved]
  - Recurrent cancer [Unknown]
  - Osteonecrosis of jaw [Unknown]
  - Pain [Unknown]
  - Discomfort [Unknown]
  - Scar [Unknown]
  - Hypophagia [Unknown]
  - Emotional distress [Unknown]
  - Anxiety [Unknown]
  - Life expectancy shortened [Unknown]
  - Anhedonia [Unknown]
  - Injury [Unknown]
  - Physical disability [Unknown]
  - Prostatic specific antigen increased [Unknown]
  - Fistula [Recovered/Resolved]
  - Osteomyelitis [Unknown]
  - Haemorrhage [Unknown]
  - Radiculopathy [Unknown]
  - Tooth disorder [Unknown]
  - Haemorrhoidal haemorrhage [Unknown]
  - Thrombocytopenia [Unknown]
  - Gastrointestinal haemorrhage [Unknown]
  - Herpes simplex [Unknown]
  - Herpes zoster [Unknown]
  - Atelectasis [Unknown]
  - Nephrolithiasis [Unknown]
  - Rectal haemorrhage [Unknown]
  - Diarrhoea [Unknown]
  - Hiatus hernia [Unknown]
  - Metastases to bone [Unknown]
  - Total lung capacity decreased [Unknown]
  - Lung infiltration [Recovered/Resolved]
  - Hypoxia [Unknown]
  - Haematuria [Unknown]
  - Pyrexia [Unknown]
  - Spinal pain [Unknown]
  - Musculoskeletal pain [Unknown]
  - Cough [Unknown]
  - Back pain [Unknown]
  - Dizziness [Unknown]
  - Stress [Unknown]
  - Blood pressure decreased [Unknown]
  - Arthralgia [Unknown]
  - Muscle spasms [Unknown]
  - Dyspnoea [Unknown]
  - International normalised ratio increased [Unknown]
  - Hepatic cyst [Unknown]
  - Renal cyst [Unknown]
  - Bladder diverticulum [Unknown]
  - Diverticulum intestinal [Unknown]
  - Metaplasia [Unknown]
  - Sleep apnoea syndrome [Unknown]
  - Migraine [Unknown]
  - Respiratory distress [Unknown]
  - Acute respiratory failure [Unknown]
  - Pathological fracture [Unknown]
  - Neuritis [Unknown]
  - Inguinal hernia [Unknown]
  - Fall [Unknown]
  - Head injury [Unknown]
  - Coagulopathy [Unknown]
  - Laceration [Unknown]
  - Large intestine polyp [Unknown]
  - Rib fracture [Unknown]
  - Rash [Unknown]
  - Chest pain [Unknown]
  - Haematemesis [Unknown]
  - Dysphagia [Recovered/Resolved]
  - Epistaxis [Unknown]
